FAERS Safety Report 7599555-8 (Version None)
Quarter: 2011Q3

REPORT INFORMATION
  Report Type: 
  Country: None (occurrence: None)
  Receive Date: 20110711
  Receipt Date: 20091125
  Transmission Date: 20111222
  Serious: No
  Sender: FDA-Public Use
  Company Number: 2009BI039045

PATIENT
  Age: 56 Year
  Sex: Female

DRUGS (3)
  1. TYSABRI [Suspect]
     Indication: MULTIPLE SCLEROSIS
     Route: 042
     Dates: start: 20050101, end: 20050101
  2. TYSABRI [Suspect]
     Route: 042
     Dates: start: 20050216
  3. TYSABRI [Suspect]
     Route: 042
     Dates: start: 20070614

REACTIONS (6)
  - DEPRESSED LEVEL OF CONSCIOUSNESS [None]
  - URINARY INCONTINENCE [None]
  - COGNITIVE DISORDER [None]
  - FATIGUE [None]
  - ASTHENIA [None]
  - DYSPHONIA [None]
